FAERS Safety Report 17025709 (Version 2)
Quarter: 2019Q4

REPORT INFORMATION
  Report Type: Spontaneous
  Country: IE (occurrence: IE)
  Receive Date: 20191113
  Receipt Date: 20191205
  Transmission Date: 20200122
  Serious: Yes (Death, Life-Threatening)
  Sender: FDA-Public Use
  Company Number: IE-ASTRAZENECA-2019SF60557

PATIENT
  Age: 76 Year
  Sex: Female
  Weight: 65 kg

DRUGS (10)
  1. ISONIAZID (GENERIC) [Suspect]
     Active Substance: ISONIAZID
     Indication: LATENT TUBERCULOSIS
     Route: 048
     Dates: start: 20190830
  2. MIRTAZAPINE (G) [Suspect]
     Active Substance: MIRTAZAPINE
     Route: 048
  3. CALCICHEW-D3 FORTE [Concomitant]
     Active Substance: CALCIUM\CHOLECALCIFEROL
     Dosage: 12 - EVERY HOUR
  4. ESOMEPRAZOLE (G) [Concomitant]
  5. ROSUVASTATIN (G) [Suspect]
     Active Substance: ROSUVASTATIN
     Route: 048
  6. ATENOLOL (GENERIC) [Concomitant]
  7. PREDNISOLONE (GENERIC) [Concomitant]
  8. INVOKANA [Suspect]
     Active Substance: CANAGLIFLOZIN
     Indication: DIABETES MELLITUS
     Route: 048
  9. PYRIDOXINE (GENERIC) [Concomitant]
  10. METFORMIN (GENERIC) [Concomitant]
     Active Substance: METFORMIN HYDROCHLORIDE
     Indication: DIABETES MELLITUS

REACTIONS (3)
  - Cerebral infarction [Fatal]
  - Diabetic ketoacidosis [Fatal]
  - Pancreatitis [Fatal]

NARRATIVE: CASE EVENT DATE: 201910
